FAERS Safety Report 6734579-1 (Version None)
Quarter: 2010Q2

REPORT INFORMATION
  Report Type: 
  Country: None (occurrence: None)
  Receive Date: 20100520
  Receipt Date: 20100419
  Transmission Date: 20101027
  Serious: No
  Sender: FDA-Public Use
  Company Number: US-ALLERGAN-1005112US

PATIENT
  Age: 77 Year
  Sex: Female

DRUGS (1)
  1. SANCTURA XR [Suspect]
     Indication: MICTURITION URGENCY
     Dosage: 60 MG, QAM
     Route: 048
     Dates: start: 20100412, end: 20100416

REACTIONS (2)
  - MICTURITION URGENCY [None]
  - VISION BLURRED [None]
